FAERS Safety Report 8852999 (Version 2)
Quarter: 2013Q4

REPORT INFORMATION
  Report Type: Spontaneous
  Country: US (occurrence: US)
  Receive Date: 20121022
  Receipt Date: 20131003
  Transmission Date: 20140711
  Serious: No
  Sender: FDA-Public Use
  Company Number: US-009507513-1210USA006727

PATIENT
  Age: 50 Year
  Sex: Female
  Weight: 58.5 kg

DRUGS (9)
  1. MAXALT [Suspect]
     Indication: HEADACHE
     Dosage: UNK, BID
     Route: 048
     Dates: start: 20120912, end: 20120912
  2. SUMAVEL DOSEPRO [Suspect]
     Indication: MIGRAINE
     Dosage: UNK, ONCE
     Dates: start: 20120913, end: 20120913
  3. FIORICET [Concomitant]
     Indication: HEADACHE
     Dosage: 5 DF, UNK
     Route: 048
     Dates: start: 20120912, end: 20120912
  4. LORAZEPAM [Concomitant]
  5. VIIBRYD [Concomitant]
  6. SYNTHROID [Concomitant]
  7. SIMVASTATIN [Concomitant]
  8. AMBIEN [Concomitant]
  9. TRAZODONE HYDROCHLORIDE [Concomitant]

REACTIONS (7)
  - Blood pressure immeasurable [Recovered/Resolved]
  - Dyspnoea [Recovered/Resolved]
  - Hypoaesthesia [Recovered/Resolved]
  - Asthenia [Recovered/Resolved]
  - Throat tightness [Recovered/Resolved]
  - Migraine [Recovered/Resolved]
  - Drug ineffective [Unknown]
